FAERS Safety Report 15672719 (Version 1)
Quarter: 2018Q4

REPORT INFORMATION
  Report Type: Report from Study
  Country: US (occurrence: US)
  Receive Date: 20181129
  Receipt Date: 20181129
  Transmission Date: 20190205
  Serious: No
  Sender: FDA-Public Use
  Company Number: US-TESARO-US-2018TSO02476

PATIENT
  Sex: Female

DRUGS (4)
  1. ZEJULA [Suspect]
     Active Substance: NIRAPARIB
     Dosage: ALTERNATED DOSE
     Route: 048
  2. ZEJULA [Suspect]
     Active Substance: NIRAPARIB
     Indication: OVARIAN CANCER
     Dosage: 200 MG, QD
     Route: 048
     Dates: start: 20171215, end: 20171231
  3. LOVENOX [Concomitant]
     Active Substance: ENOXAPARIN SODIUM
     Indication: PRODUCT USED FOR UNKNOWN INDICATION
     Dosage: UNK
  4. ZEJULA [Suspect]
     Active Substance: NIRAPARIB
     Dosage: 300 MG
     Route: 048
     Dates: start: 20180101

REACTIONS (7)
  - Back pain [Unknown]
  - Contusion [Unknown]
  - Weight decreased [Recovering/Resolving]
  - Inappropriate schedule of product administration [Unknown]
  - Carbohydrate antigen 125 increased [Recovering/Resolving]
  - Intervertebral disc degeneration [Unknown]
  - Dyspnoea [Unknown]
